FAERS Safety Report 8405932-5 (Version None)
Quarter: 2012Q1

REPORT INFORMATION
  Report Type: 
  Country: None (occurrence: None)
  Receive Date: 20120323
  Receipt Date: 20110309
  Transmission Date: 20120608
  Serious: Yes (Disabling)
  Sender: FDA-Public Use
  Company Number: 163-21880-11011062

PATIENT
  Age: 80 Year
  Sex: Female
  Weight: 55.79 kg

DRUGS (7)
  1. ASPIRIN [Concomitant]
  2. DILAUDID [Concomitant]
  3. GABAPENTIN [Concomitant]
  4. REVLIMID [Suspect]
     Indication: MULTIPLE MYELOMA
     Dosage: 25 MG, 1 IN 1 D, PO, 15 MG, 1 IN 1 D, PO
     Route: 048
     Dates: start: 20080701
  5. REVLIMID [Suspect]
     Indication: MULTIPLE MYELOMA
     Dosage: 25 MG, 1 IN 1 D, PO, 15 MG, 1 IN 1 D, PO
     Route: 048
     Dates: start: 20100605, end: 20110110
  6. OMEPRAZOLE [Concomitant]
  7. XANAX [Concomitant]

REACTIONS (2)
  - MULTIPLE MYELOMA [None]
  - DRUG INEFFECTIVE [None]
